FAERS Safety Report 24554737 (Version 2)
Quarter: 2024Q4

REPORT INFORMATION
  Report Type: Spontaneous
  Country: GB (occurrence: GB)
  Receive Date: 20241028
  Receipt Date: 20241119
  Transmission Date: 20250114
  Serious: Yes (Hospitalization, Other)
  Sender: AMGEN
  Company Number: GB-Vifor (International) Inc.-VIT-2024-09537

PATIENT
  Age: 70 Year
  Sex: Female
  Weight: 81.3 kg

DRUGS (8)
  1. TAVNEOS [Suspect]
     Active Substance: AVACOPAN
     Indication: Anti-neutrophil cytoplasmic antibody positive vasculitis
     Dosage: LAST DOSE OF TAVNEOS PRIOR TO SERIOUS ADVERSE EVENT WAS ADMINISTERED ON 05-AUG-2024
     Route: 048
     Dates: start: 20240803
  2. CYCLOPHOSPHAMIDE [Concomitant]
     Active Substance: CYCLOPHOSPHAMIDE
     Indication: Anti-neutrophil cytoplasmic antibody positive vasculitis
     Dosage: SINGLE IV INFUSION.COMPLETION OF PLANNED COURSE.
     Route: 040
     Dates: start: 20240719, end: 20240719
  3. CYCLOPHOSPHAMIDE [Concomitant]
     Active Substance: CYCLOPHOSPHAMIDE
     Dosage: SINGLE IV INFUSION.COMPLETION OF PLANNED COURSE.
     Route: 040
     Dates: start: 20240805, end: 20240805
  4. RITUXIMAB [Concomitant]
     Active Substance: RITUXIMAB
     Indication: Anti-neutrophil cytoplasmic antibody positive vasculitis
     Dosage: SINGLE IV INFUSIONCOMPLETION OF PLANNED COURSE
     Route: 040
     Dates: start: 20240804, end: 20240804
  5. RITUXIMAB [Concomitant]
     Active Substance: RITUXIMAB
     Dosage: SINGLE IV INFUSIONCOMPLETION OF PLANNED COURSE
     Route: 040
     Dates: start: 20240819, end: 20240819
  6. METHYLPREDNISOLONE [Concomitant]
     Active Substance: METHYLPREDNISOLONE
     Indication: Anti-neutrophil cytoplasmic antibody positive vasculitis
     Dosage: SINGLE IV INFUSION.COMPLETION OF PLANNED COURSE
     Route: 040
     Dates: start: 20240804, end: 20240804
  7. METHYLPREDNISOLONE [Concomitant]
     Active Substance: METHYLPREDNISOLONE
     Dosage: SINGLE IV INFUSION.COMPLETION OF PLANNED COURSE
     Route: 040
     Dates: start: 20240819, end: 20240819
  8. PREDNISOLONE [Concomitant]
     Active Substance: PREDNISOLONE
     Indication: Anti-neutrophil cytoplasmic antibody positive vasculitis
     Dosage: 10 MILLIGRAM, QD
     Route: 048
     Dates: start: 20240716, end: 20240819

REACTIONS (1)
  - Lower respiratory tract infection [Recovered/Resolved]

NARRATIVE: CASE EVENT DATE: 20240806
